FAERS Safety Report 14147893 (Version 1)
Quarter: 2017Q4

REPORT INFORMATION
  Report Type: Spontaneous
  Country: US (occurrence: US)
  Receive Date: 20171101
  Receipt Date: 20171101
  Transmission Date: 20180321
  Serious: No
  Sender: FDA-Public Use
  Company Number: US-SUN PHARMACEUTICAL INDUSTRIES LTD-2017US-149172

PATIENT
  Sex: Female

DRUGS (1)
  1. BROMSITE 0.075% [Suspect]
     Active Substance: BROMFENAC SODIUM
     Indication: INFLAMMATION
     Dosage: 1 GTT, BID
     Route: 031

REACTIONS (3)
  - Product use in unapproved indication [Unknown]
  - Eye pain [Unknown]
  - Ear pain [Unknown]
